FAERS Safety Report 8378443-3 (Version None)
Quarter: 2012Q2

REPORT INFORMATION
  Report Type: 
  Country: None (occurrence: None)
  Receive Date: 20120522
  Receipt Date: 20110816
  Transmission Date: 20120825
  Serious: No
  Sender: FDA-Public Use
  Company Number: US-ASTRAZENECA-2011SE49317

PATIENT
  Age: 58 Year

DRUGS (13)
  1. CITALOPRAM HYDROBROMIDE [Concomitant]
  2. CLONAZEPAM [Concomitant]
  3. ASPIRIN [Concomitant]
  4. GABAPENTIN [Concomitant]
  5. TRAMADOL HCL [Concomitant]
     Indication: PAIN
  6. TRICOR [Concomitant]
  7. OMEPRAZOLE [Suspect]
     Route: 048
     Dates: start: 20100503
  8. LOSARTAN POTASSIUM AND HYDROCHLOROTHIAZIDE [Concomitant]
  9. SEROQUEL [Suspect]
     Route: 048
     Dates: start: 20070621
  10. KLOR-CON [Concomitant]
  11. CRESTOR [Suspect]
     Route: 048
     Dates: start: 20091125
  12. PROMETHAZINE [Concomitant]
  13. ROPINIROLE HYDROCHLORIDE [Concomitant]

REACTIONS (1)
  - PAIN [None]
